FAERS Safety Report 15852845 (Version 1)
Quarter: 2019Q1

REPORT INFORMATION
  Report Type: Spontaneous
  Country: US (occurrence: US)
  Receive Date: 20190122
  Receipt Date: 20190122
  Transmission Date: 20190417
  Serious: Yes (Death)
  Sender: FDA-Public Use
  Company Number: US-TARO PHARMACEUTICALS USA.,INC-2019SUN00028

PATIENT

DRUGS (1)
  1. PREDNISOLONE. [Suspect]
     Active Substance: PREDNISOLONE
     Indication: INFANTILE SPASMS
     Dosage: 40 TO 45 MG/DAY
     Route: 048

REACTIONS (2)
  - Off label use [Fatal]
  - Necrotising colitis [Fatal]
